FAERS Safety Report 5320879-9 (Version None)
Quarter: 2007Q2

REPORT INFORMATION
  Report Type: 
  Country: None (occurrence: None)
  Receive Date: 20070504
  Receipt Date: 20070419
  Transmission Date: 20071010
  Serious: Yes (Disabling)
  Sender: FDA-Public Use
  Company Number: SU-2007-006014

PATIENT
  Sex: Female

DRUGS (6)
  1. OLMETEC (OLMESARTAN MEDOXOMIL) (20 MILLIGRAM, TABLET) (OLMESARTAN MEDO [Suspect]
     Indication: HYPERTENSION
     Dosage: 20 MG (20 MG, QD), PER ORAL
     Route: 048
     Dates: start: 20040101
  2. CADUET (TABLET) [Suspect]
     Indication: HYPERTENSION
     Dosage: 20/10 MG (MG, BID), PER ORAL
     Route: 048
     Dates: start: 20040101
  3. ALDACTONE [Suspect]
     Indication: HYPERTENSION
     Dosage: (QD), PER ORAL
     Route: 048
     Dates: start: 20040101
  4. DIABINESE (CHLORPROPAMIDE) (CHLORPROPAMIDE) [Concomitant]
  5. NORVASC [Concomitant]
  6. INSULIN (INSULIN) (INSULIN) [Concomitant]

REACTIONS (4)
  - DYSPNOEA [None]
  - FATIGUE [None]
  - IMPAIRED WORK ABILITY [None]
  - PALPITATIONS [None]
